FAERS Safety Report 6673771-1 (Version None)
Quarter: 2010Q2

REPORT INFORMATION
  Report Type: 
  Country: None (occurrence: None)
  Receive Date: 20100407
  Receipt Date: 20100323
  Transmission Date: 20101027
  Serious: Yes (Life-Threatening, Hospitalization, Other)
  Sender: FDA-Public Use
  Company Number: 2010SCPR000465

PATIENT
  Age: 24 Year
  Sex: Female

DRUGS (1)
  1. DIAZEPAM [Suspect]
     Indication: DRUG USE FOR UNKNOWN INDICATION
     Dosage: 10 TABLETS, ORAL
     Route: 048

REACTIONS (27)
  - AMNESIA [None]
  - ANION GAP INCREASED [None]
  - AREFLEXIA [None]
  - BLOOD CREATINE PHOSPHOKINASE INCREASED [None]
  - BLOOD PH DECREASED [None]
  - BLOOD PRESSURE ABNORMAL [None]
  - BLOOD SODIUM INCREASED [None]
  - BODY TEMPERATURE [None]
  - BRAIN DEATH [None]
  - BRAIN OEDEMA [None]
  - CEREBRAL INFARCTION [None]
  - COMA [None]
  - CYANOSIS [None]
  - DRUG TOXICITY [None]
  - HAEMODIALYSIS [None]
  - HEART RATE INCREASED [None]
  - HYPOPNOEA [None]
  - INTENTIONAL OVERDOSE [None]
  - LOSS OF CONSCIOUSNESS [None]
  - NEUTROPHIL PERCENTAGE INCREASED [None]
  - PNEUMONIA ASPIRATION [None]
  - PO2 INCREASED [None]
  - PUPIL FIXED [None]
  - PUPILS UNEQUAL [None]
  - RENAL FAILURE ACUTE [None]
  - SUICIDE ATTEMPT [None]
  - WHITE BLOOD CELL COUNT INCREASED [None]
